FAERS Safety Report 4352392-X (Version None)
Quarter: 2004Q2

REPORT INFORMATION
  Report Type: 
  Country: None (occurrence: None)
  Receive Date: 20040430
  Receipt Date: 20040415
  Transmission Date: 20050107
  Serious: Yes (Other)
  Sender: FDA-Public Use
  Company Number: 2004EU000823

PATIENT
  Age: 57 Year
  Sex: Male

DRUGS (1)
  1. PROTOPIC [Suspect]
     Indication: LICHEN SCLEROSUS
     Dosage: D,TOPICAL
     Route: 061

REACTIONS (1)
  - PENIS CARCINOMA [None]
